FAERS Safety Report 8571070-4 (Version None)
Quarter: 2012Q3

REPORT INFORMATION
  Report Type: 
  Country: None (occurrence: None)
  Receive Date: 20120730
  Receipt Date: 20120730
  Transmission Date: 20120928
  Serious: Yes (Life-Threatening, Hospitalization)
  Sender: FDA-Public Use
  Company Number: None

PATIENT
  Age: 66 Year
  Sex: Male
  Weight: 83.4 kg

DRUGS (1)
  1. IPILIMUMAB [Suspect]
     Indication: METASTATIC MALIGNANT MELANOMA
     Dosage: 260 MG ONCE IV
     Route: 042
     Dates: start: 20120612, end: 20120612

REACTIONS (3)
  - CLOSTRIDIAL INFECTION [None]
  - GASTRIC HAEMORRHAGE [None]
  - DIARRHOEA [None]
